FAERS Safety Report 12716594 (Version 5)
Quarter: 2016Q4

REPORT INFORMATION
  Report Type: Report from Study
  Country: US (occurrence: US)
  Receive Date: 20160906
  Receipt Date: 20161012
  Transmission Date: 20170207
  Serious: Yes (Other)
  Sender: FDA-Public Use
  Company Number: US-GILEAD-2016-0223228

PATIENT
  Age: 50 Year
  Sex: Female

DRUGS (14)
  1. TYVASO [Suspect]
     Active Substance: TREPROSTINIL
     Dosage: 3 DF, QID
     Route: 055
  2. AMIODARONE [Concomitant]
     Active Substance: AMIODARONE
  3. VITRON-C [Concomitant]
  4. TYVASO [Suspect]
     Active Substance: TREPROSTINIL
     Indication: PRODUCT USED FOR UNKNOWN INDICATION
     Dosage: UNK
     Route: 055
     Dates: start: 20160811
  5. AMOXICILLIN. [Concomitant]
     Active Substance: AMOXICILLIN
  6. DEXILANT [Concomitant]
     Active Substance: DEXLANSOPRAZOLE
  7. SUCRALFATE. [Concomitant]
     Active Substance: SUCRALFATE
  8. AMBRISENTAN [Suspect]
     Active Substance: AMBRISENTAN
     Indication: HEART DISEASE CONGENITAL
  9. BUMETANIDE. [Concomitant]
     Active Substance: BUMETANIDE
  10. FLUTICASONE [Concomitant]
     Active Substance: FLUTICASONE\FLUTICASONE PROPIONATE
  11. POTASSIUM CHLORIDE. [Concomitant]
     Active Substance: POTASSIUM CHLORIDE
  12. AMBRISENTAN [Suspect]
     Active Substance: AMBRISENTAN
     Indication: PULMONARY ARTERIAL HYPERTENSION
     Dosage: 5 MG, QD
     Route: 048
     Dates: start: 20160203
  13. ALPRAZOLAM. [Concomitant]
     Active Substance: ALPRAZOLAM
  14. PROBIOTIC                          /06395501/ [Concomitant]
     Active Substance: BIFIDOBACTERIUM ANIMALIS SUBSP. LACTIS

REACTIONS (20)
  - Nausea [Not Recovered/Not Resolved]
  - Oropharyngeal pain [Recovered/Resolved]
  - Anxiety [Recovered/Resolved]
  - Condition aggravated [Not Recovered/Not Resolved]
  - Chest discomfort [Unknown]
  - Oxygen saturation abnormal [Unknown]
  - Chest pain [Not Recovered/Not Resolved]
  - Back pain [Not Recovered/Not Resolved]
  - Cough [Unknown]
  - Nocturnal dyspnoea [Not Recovered/Not Resolved]
  - Myalgia [Unknown]
  - Fear [Recovered/Resolved]
  - Palpitations [Not Recovered/Not Resolved]
  - Throat irritation [Not Recovered/Not Resolved]
  - Hypotension [Unknown]
  - Influenza like illness [Not Recovered/Not Resolved]
  - Dyspnoea [Recovered/Resolved]
  - Headache [Recovered/Resolved]
  - Pain [Unknown]
  - Haemoglobin decreased [Unknown]

NARRATIVE: CASE EVENT DATE: 20160624
